FAERS Safety Report 7986320-2 (Version None)
Quarter: 2011Q4

REPORT INFORMATION
  Report Type: 
  Country: None (occurrence: None)
  Receive Date: 20111216
  Receipt Date: 20110719
  Transmission Date: 20120403
  Serious: No
  Sender: FDA-Public Use
  Company Number: US-BRISTOL-MYERS SQUIBB COMPANY-15878747

PATIENT
  Age: 3 Decade
  Sex: Female

DRUGS (2)
  1. ABILIFY [Suspect]
     Indication: MAJOR DEPRESSION
  2. LEXAPRO [Suspect]
     Dosage: STARTED WITH 10 MG, INCREASED TO 20MG

REACTIONS (1)
  - WEIGHT INCREASED [None]
